FAERS Safety Report 5913336-X (Version None)
Quarter: 2008Q4

REPORT INFORMATION
  Report Type: 
  Country: None (occurrence: None)
  Receive Date: 20081008
  Receipt Date: 20081008
  Transmission Date: 20090506
  Serious: Yes (Life-Threatening, Hospitalization)
  Sender: FDA-Public Use
  Company Number: None

PATIENT
  Age: 82 Year
  Sex: Female
  Weight: 57.6 kg

DRUGS (11)
  1. DIGOXIN [Suspect]
     Indication: ATRIAL FIBRILLATION
     Dosage: 0.5MG ONCE IV BOLUS
     Route: 040
     Dates: start: 20071117, end: 20071117
  2. DIGOXIN [Suspect]
     Indication: ATRIAL FIBRILLATION
     Dosage: 0.25MG EVERY 6 HOURS X1 IV BOLUS
     Route: 040
     Dates: start: 20071117, end: 20071117
  3. POTASSIUM CHLORIDE [Concomitant]
  4. TOLTERODINE SR [Concomitant]
  5. IRBESARTAN [Concomitant]
  6. FAMOTIDINE [Concomitant]
  7. THYROID TAB [Concomitant]
  8. METOPROLOL TARTRATE [Concomitant]
  9. WARFARIN SODIUM [Concomitant]
  10. FUROSEMIDE [Concomitant]
  11. MAGNESIUM SULFATE [Concomitant]

REACTIONS (1)
  - CARDIAC ARREST [None]
